FAERS Safety Report 7136087-5 (Version None)
Quarter: 2010Q4

REPORT INFORMATION
  Report Type: 
  Country: None (occurrence: None)
  Receive Date: 20101204
  Receipt Date: 20100630
  Transmission Date: 20110411
  Serious: Yes (Hospitalization, Other)
  Sender: FDA-Public Use
  Company Number: US-BAYER-200938967NA

PATIENT

DRUGS (12)
  1. YAZ [Suspect]
     Route: 048
     Dates: start: 20070601, end: 20080505
  2. YASMIN [Suspect]
     Route: 048
     Dates: start: 20070601, end: 20080505
  3. HYDROCHLOROTHIAZIDE [Concomitant]
     Route: 065
     Dates: start: 20060101
  4. IBUPROFEN [Concomitant]
     Route: 065
  5. ALEVE (CAPLET) [Concomitant]
     Route: 065
  6. ADVIL [Concomitant]
  7. PERCOCET [Concomitant]
  8. COLACE [Concomitant]
  9. DILAUDID [Concomitant]
     Route: 042
  10. MILK OF MAGNESIA [Concomitant]
  11. RESTORIL [Concomitant]
  12. ACETAMINOPHEN [Concomitant]

REACTIONS (7)
  - ATELECTASIS [None]
  - CHOLECYSTITIS CHRONIC [None]
  - CHOLELITHIASIS [None]
  - DEEP VEIN THROMBOSIS [None]
  - GASTROINTESTINAL INJURY [None]
  - HAEMOPTYSIS [None]
  - INTRACARDIAC THROMBUS [None]
